FAERS Safety Report 14715371 (Version 6)
Quarter: 2018Q3

REPORT INFORMATION
  Report Type: Spontaneous
  Country: PL (occurrence: PL)
  Receive Date: 20180404
  Receipt Date: 20180822
  Transmission Date: 20181010
  Serious: Yes (Hospitalization, Disabling, Other)
  Sender: FDA-Public Use
  Company Number: PL-GLAXOSMITHKLINE-PL2018052464

PATIENT
  Age: 17 Year
  Sex: Female

DRUGS (7)
  1. PARACETAMOL [Interacting]
     Active Substance: ACETAMINOPHEN
     Indication: PAIN
  2. KETONAL FORTE [Suspect]
     Active Substance: KETOPROFEN
     Indication: BACK PAIN
  3. KETONAL FORTE [Suspect]
     Active Substance: KETOPROFEN
     Indication: PAIN
  4. DICLOFENAC SODIUM. [Suspect]
     Active Substance: DICLOFENAC SODIUM
     Indication: PAIN
     Dosage: AS NECESSARY
     Route: 065
  5. DICLOFENAC SODIUM. [Suspect]
     Active Substance: DICLOFENAC SODIUM
     Indication: BACK PAIN
     Dosage: 50 MG X 1?2 A DAY
     Route: 065
  6. KETONAL FORTE [Suspect]
     Active Substance: KETOPROFEN
     Indication: INJURY
     Dosage: 100 MG, BID
     Route: 065
  7. PARACETAMOL [Interacting]
     Active Substance: ACETAMINOPHEN
     Indication: INJURY
     Dosage: 500 MG, TID
     Route: 048

REACTIONS (23)
  - Acute kidney injury [Recovered/Resolved]
  - Urinary retention [Recovering/Resolving]
  - Urinary hesitation [Recovering/Resolving]
  - Nerve compression [Recovering/Resolving]
  - Respiratory rate increased [Recovering/Resolving]
  - Inflammation [Recovering/Resolving]
  - Pallor [Recovering/Resolving]
  - Staphylococcal infection [Recovering/Resolving]
  - Renal impairment [Recovering/Resolving]
  - Condition aggravated [Recovering/Resolving]
  - Asthenia [Recovering/Resolving]
  - Dry mouth [Recovering/Resolving]
  - Staphylococcal sepsis [Recovered/Resolved]
  - Pyrexia [Recovering/Resolving]
  - Subcutaneous abscess [Recovering/Resolving]
  - Abdominal tenderness [Recovering/Resolving]
  - Back pain [Recovering/Resolving]
  - Drug interaction [Unknown]
  - Nausea [Recovering/Resolving]
  - Emotional distress [Recovering/Resolving]
  - Chromaturia [Recovering/Resolving]
  - Skin turgor decreased [Recovering/Resolving]
  - Dehydration [Recovering/Resolving]
